FAERS Safety Report 5468071-1 (Version None)
Quarter: 2007Q3

REPORT INFORMATION
  Report Type: 
  Country: None (occurrence: None)
  Receive Date: 20070820
  Receipt Date: 20070420
  Transmission Date: 20080115
  Serious: No
  Sender: FDA-Public Use
  Company Number: WAES 0703USA00228

PATIENT
  Age: 92 Year
  Sex: Female
  Weight: 63.9572 kg

DRUGS (10)
  1. JANUVIA [Suspect]
     Indication: TYPE 2 DIABETES MELLITUS
     Dosage: 25 MG/DAILY/PO
     Route: 048
     Dates: start: 20070209, end: 20070226
  2. ACTOS [Concomitant]
  3. COREG [Concomitant]
  4. LASIX [Concomitant]
  5. LOTREL [Concomitant]
  6. PRILOSEC [Concomitant]
  7. TYLENOL EXTRA STRENGTH [Concomitant]
  8. ISOSORBIDE DINITRATE [Concomitant]
  9. OMEGA-3 MARINE TRIGLYCERIDES [Concomitant]
  10. SPIRONOLACTONE [Concomitant]

REACTIONS (2)
  - DIZZINESS [None]
  - VISUAL ACUITY REDUCED [None]
